FAERS Safety Report 7804611-2 (Version None)
Quarter: 2011Q4

REPORT INFORMATION
  Report Type: 
  Country: None (occurrence: None)
  Receive Date: 20111010
  Receipt Date: 20110929
  Transmission Date: 20120403
  Serious: Yes (Other)
  Sender: FDA-Public Use
  Company Number: SE-UCBSA-026630

PATIENT
  Age: 33 Year
  Sex: Female
  Weight: 65 kg

DRUGS (3)
  1. CIMZIA [Suspect]
     Indication: CROHN'S DISEASE
     Route: 058
  2. IRON SUPPLEMENTATION [Concomitant]
     Indication: SERUM FERRITIN DECREASED
     Dosage: 1 GM
     Dates: start: 20101027, end: 20101027
  3. IRON SUPPLEMENTATION [Concomitant]
     Dosage: 500 MG
     Dates: start: 20110120, end: 20110120

REACTIONS (4)
  - MATERNAL EXPOSURE DURING PREGNANCY [None]
  - LACTATION DISORDER [None]
  - CAESAREAN SECTION [None]
  - BREAST FEEDING [None]
